FAERS Safety Report 5159236-7 (Version None)
Quarter: 2006Q4

REPORT INFORMATION
  Report Type: 
  Country: None (occurrence: None)
  Receive Date: 20061128
  Receipt Date: 20061106
  Transmission Date: 20070319
  Serious: Yes (Hospitalization)
  Sender: FDA-Public Use
  Company Number: NZ-MERCK-0611NZL00004

PATIENT
  Age: 65 Year
  Sex: Female

DRUGS (2)
  1. ZOCOR [Suspect]
     Indication: BLOOD CHOLESTEROL INCREASED
     Route: 048
     Dates: start: 20061009, end: 20061103
  2. ANTIOXIDANTS (UNSPECIFIED) [Concomitant]
     Indication: MYALGIA
     Route: 065
     Dates: start: 20051101

REACTIONS (6)
  - DIZZINESS [None]
  - FATIGUE [None]
  - FLATULENCE [None]
  - HEADACHE [None]
  - HYPERTENSION [None]
  - PALPITATIONS [None]
